FAERS Safety Report 14511577 (Version 1)
Quarter: 2018Q1

REPORT INFORMATION
  Report Type: Spontaneous
  Country: CN (occurrence: CN)
  Receive Date: 20180209
  Receipt Date: 20180209
  Transmission Date: 20180509
  Serious: Yes (Death)
  Sender: FDA-Public Use
  Company Number: CN-BAYER-2018-021731

PATIENT

DRUGS (1)
  1. AVELOX [Suspect]
     Active Substance: MOXIFLOXACIN HYDROCHLORIDE
     Dosage: UNK
     Route: 042
     Dates: start: 20180201, end: 20180201

REACTIONS (3)
  - Product contamination physical [None]
  - Poor quality drug administered [None]
  - Death [Fatal]

NARRATIVE: CASE EVENT DATE: 20180201
